FAERS Safety Report 23788709 (Version 9)
Quarter: 2025Q2

REPORT INFORMATION
  Report Type: Report from Study
  Country: JP (occurrence: JP)
  Receive Date: 20240426
  Receipt Date: 20250522
  Transmission Date: 20250716
  Serious: Yes (Hospitalization)
  Sender: EISAI
  Company Number: JP-Eisai-202400900_LEQ_P_1

PATIENT
  Age: 75 Year
  Sex: Female
  Weight: 49.2 kg

DRUGS (12)
  1. LEQEMBI [Suspect]
     Active Substance: LECANEMAB-IRMB
     Indication: Dementia Alzheimer^s type
     Route: 042
     Dates: start: 20240216
  2. LEQEMBI [Suspect]
     Active Substance: LECANEMAB-IRMB
     Indication: Cerebral amyloid angiopathy
     Route: 042
     Dates: start: 20240329, end: 20240329
  3. EMPAGLIFLOZIN\LINAGLIPTIN [Concomitant]
     Active Substance: EMPAGLIFLOZIN\LINAGLIPTIN
     Indication: Product used for unknown indication
  4. REPAGLINIDE [Concomitant]
     Active Substance: REPAGLINIDE
  5. VIMPAT [Concomitant]
     Active Substance: LACOSAMIDE
  6. REPAGLINIDE [Concomitant]
     Active Substance: REPAGLINIDE
  7. NIFEDIPINE [Concomitant]
     Active Substance: NIFEDIPINE
  8. PREDNISOLONE [Concomitant]
     Active Substance: PREDNISOLONE
  9. DEXAMETHASONE SODIUM PHOSPHATE [Concomitant]
     Active Substance: DEXAMETHASONE SODIUM PHOSPHATE
  10. FRUCTOSE\GLYCERIN [Concomitant]
     Active Substance: FRUCTOSE\GLYCERIN
  11. PEMAFIBRATE [Concomitant]
     Active Substance: PEMAFIBRATE
  12. OMEPRAZOLE [Concomitant]
     Active Substance: OMEPRAZOLE

REACTIONS (4)
  - Amyloid related imaging abnormality-oedema/effusion [Recovering/Resolving]
  - Amyloid related imaging abnormality-microhaemorrhages and haemosiderin deposits [Recovering/Resolving]
  - Altered state of consciousness [Recovered/Resolved]
  - Superficial siderosis of central nervous system [Recovering/Resolving]

NARRATIVE: CASE EVENT DATE: 20240408
